FAERS Safety Report 10154862 (Version 1)
Quarter: 2014Q2

REPORT INFORMATION
  Report Type: Spontaneous
  Country: ES (occurrence: DE)
  Receive Date: 20140506
  Receipt Date: 20140506
  Transmission Date: 20141212
  Serious: Yes (Life-Threatening, Hospitalization)
  Sender: FDA-Public Use
  Company Number: DE-FRI-1000067067

PATIENT
  Age: 74 Year
  Sex: Male

DRUGS (4)
  1. ACLIDINIUM [Suspect]
     Indication: CHRONIC OBSTRUCTIVE PULMONARY DISEASE
     Dates: start: 20130827
  2. AMLODIPIN [Concomitant]
  3. PULMICORT [Concomitant]
     Indication: CHRONIC OBSTRUCTIVE PULMONARY DISEASE
  4. CALCIUM D3 [Concomitant]
     Indication: OSTEOPOROSIS

REACTIONS (1)
  - Acquired haemophilia with anti FVIII, XI, or XIII [Unknown]
